FAERS Safety Report 17116215 (Version 1)
Quarter: 2019Q4

REPORT INFORMATION
  Report Type: Spontaneous
  Country: HK (occurrence: HK)
  Receive Date: 20191205
  Receipt Date: 20191205
  Transmission Date: 20200122
  Serious: Yes (Other)
  Sender: FDA-Public Use
  Company Number: HK-PFIZER INC-2019525698

PATIENT
  Age: 59 Year
  Sex: Female

DRUGS (16)
  1. CYTARABINE. [Suspect]
     Active Substance: CYTARABINE
     Dosage: UNK
     Dates: start: 20181204
  2. VINCRISTINE [Suspect]
     Active Substance: VINCRISTINE
     Indication: LYMPHOCYTIC LEUKAEMIA
     Dosage: UNK UNK, CYCLIC
     Dates: start: 20180214
  3. THYROXINE [Concomitant]
     Active Substance: LEVOTHYROXINE
     Dosage: 50 UG, DAILY
     Route: 048
  4. METOPROLOL TARTRATE. [Concomitant]
     Active Substance: METOPROLOL TARTRATE
     Dosage: 50 MG, 2X/DAY
     Route: 048
  5. DOXORUBICIN HCL [Suspect]
     Active Substance: DOXORUBICIN HYDROCHLORIDE
     Indication: LYMPHOCYTIC LEUKAEMIA
     Dosage: UNK UNK, CYCLIC
     Dates: start: 20180214
  6. METHOTREXATE. [Suspect]
     Active Substance: METHOTREXATE
     Indication: LYMPHOCYTIC LEUKAEMIA
     Dosage: UNK, CYCLIC
     Dates: start: 20180404
  7. CYCLOPHOSPHAMIDE. [Suspect]
     Active Substance: CYCLOPHOSPHAMIDE
     Indication: LYMPHOCYTIC LEUKAEMIA
     Dosage: UNK, CYCLIC
     Dates: start: 20180214
  8. PANTOPRAZOLE [Concomitant]
     Active Substance: PANTOPRAZOLE
     Dosage: 40 MG, DAILY
     Route: 048
  9. DEXAMETHASONE SODIUM PHOSPHATE. [Suspect]
     Active Substance: DEXAMETHASONE SODIUM PHOSPHATE
     Indication: LYMPHOCYTIC LEUKAEMIA
     Dosage: UNK UNK, CYCLIC
     Dates: start: 20180214
  10. CYTARABINE. [Suspect]
     Active Substance: CYTARABINE
     Indication: LYMPHOCYTIC LEUKAEMIA
     Dosage: UNK UNK, CYCLIC
     Dates: start: 20180404
  11. IDARUBICIN HCL [Suspect]
     Active Substance: IDARUBICIN HYDROCHLORIDE
     Indication: LYMPHOCYTIC LEUKAEMIA
     Dosage: UNK
     Dates: start: 20181009
  12. FLUDARABINE [Suspect]
     Active Substance: FLUDARABINE PHOSPHATE
     Indication: LYMPHOCYTIC LEUKAEMIA
     Dosage: UNK
     Dates: start: 20181009
  13. CYTARABINE. [Suspect]
     Active Substance: CYTARABINE
     Dosage: UNK
     Dates: start: 20181009
  14. MITOXANTRONE [Suspect]
     Active Substance: MITOXANTRONE HYDROCHLORIDE
     Indication: LYMPHOCYTIC LEUKAEMIA
     Dosage: UNK
     Dates: start: 20181204
  15. ENTECAVIR. [Concomitant]
     Active Substance: ENTECAVIR
     Dosage: 0.5 MG, DAILY
     Route: 048
  16. LOSARTAN ^AGP^ [Concomitant]
     Dosage: 25 MG, DAILY
     Route: 048

REACTIONS (2)
  - Neoplasm progression [Unknown]
  - Febrile neutropenia [Unknown]

NARRATIVE: CASE EVENT DATE: 201810
